FAERS Safety Report 4301912-X (Version None)
Quarter: 2004Q1

REPORT INFORMATION
  Report Type: 
  Country: None (occurrence: None)
  Receive Date: 20040223
  Receipt Date: 20040212
  Transmission Date: 20041129
  Serious: Yes (Hospitalization, Other)
  Sender: FDA-Public Use
  Company Number: FR-BRISTOL-MYERS SQUIBB COMPANY-12503181

PATIENT
  Age: 46 Year
  Sex: Male

DRUGS (3)
  1. BLEOMYCIN SULFATE [Suspect]
     Indication: TESTIS CANCER
     Dosage: D1,D8,D15
     Route: 042
     Dates: start: 20030407, end: 20030407
  2. VEPESID [Suspect]
     Indication: TESTIS CANCER
     Dosage: D1-D15
     Route: 042
     Dates: start: 20030407, end: 20030407
  3. CISPLATIN [Suspect]
     Indication: TESTIS CANCER
     Dosage: D1-D15
     Route: 042
     Dates: start: 20030407, end: 20030407

REACTIONS (6)
  - ANGINA UNSTABLE [None]
  - CARDIAC FAILURE [None]
  - CEREBROVASCULAR ACCIDENT [None]
  - MYOCARDIAL ISCHAEMIA [None]
  - PULMONARY OEDEMA [None]
  - SEPTIC SHOCK [None]
